FAERS Safety Report 8348132-X (Version None)
Quarter: 2012Q2

REPORT INFORMATION
  Report Type: 
  Country: None (occurrence: None)
  Receive Date: 20120509
  Receipt Date: 20100709
  Transmission Date: 20120825
  Serious: No
  Sender: FDA-Public Use
  Company Number: US-TEVA-2010003693

PATIENT
  Sex: Female

DRUGS (1)
  1. NUVIGIL [Suspect]
     Indication: FATIGUE
     Dosage: 150 MILLIGRAM;
     Route: 048
     Dates: start: 20100701, end: 20100709

REACTIONS (8)
  - PANIC ATTACK [None]
  - DRUG TOLERANCE [None]
  - PALPITATIONS [None]
  - HYPOAESTHESIA [None]
  - BURNING SENSATION [None]
  - FEAR [None]
  - PARAESTHESIA [None]
  - HEADACHE [None]
